FAERS Safety Report 5787983-2 (Version None)
Quarter: 2008Q2

REPORT INFORMATION
  Report Type: 
  Country: None (occurrence: None)
  Receive Date: 20080625
  Receipt Date: 20080620
  Transmission Date: 20081010
  Serious: Yes (Congenital Anomaly)
  Sender: FDA-Public Use
  Company Number: TR-BRISTOL-MYERS SQUIBB COMPANY-14235337

PATIENT

DRUGS (3)
  1. BARACLUDE [Suspect]
     Dosage: TRANSMISSION VIA SEMEN
     Route: 064
     Dates: start: 20070831
  2. AMOXYCILLIN SODIUM [Suspect]
     Route: 064
  3. MAJEZIK [Suspect]

REACTIONS (4)
  - CONGENITAL ANOMALY [None]
  - DRUG EXPOSURE DURING PREGNANCY [None]
  - LIMB MALFORMATION [None]
  - TRANSMISSION OF DRUG VIA SEMEN [None]
